FAERS Safety Report 25830331 (Version 4)
Quarter: 2025Q4

REPORT INFORMATION
  Report Type: Spontaneous
  Country: EU (occurrence: EU)
  Receive Date: 20250922
  Receipt Date: 20251121
  Transmission Date: 20260118
  Serious: Yes (Other)
  Sender: GLAXOSMITHKLINE
  Company Number: EU-GSK-NO2025EME120732

PATIENT
  Sex: Female

DRUGS (1)
  1. ALBUTEROL [Suspect]
     Active Substance: ALBUTEROL
     Indication: Product used for unknown indication
     Dosage: UNK INHALATION AEROSOL 0.1MG/DOSE

REACTIONS (2)
  - Foreign body in throat [Unknown]
  - Product complaint [Unknown]

NARRATIVE: CASE EVENT DATE: 20250901
